FAERS Safety Report 6791452-0 (Version None)
Quarter: 2010Q2

REPORT INFORMATION
  Report Type: 
  Country: None (occurrence: None)
  Receive Date: 20100624
  Receipt Date: 20080707
  Transmission Date: 20101027
  Serious: No
  Sender: FDA-Public Use
  Company Number: US-PFIZER INC-2008057168

PATIENT
  Age: 63 Year
  Sex: Female

DRUGS (1)
  1. GEODON [Suspect]

REACTIONS (1)
  - COUGH [None]
